FAERS Safety Report 4560126-9 (Version None)
Quarter: 2005Q1

REPORT INFORMATION
  Report Type: 
  Country: None (occurrence: None)
  Receive Date: 20050125
  Receipt Date: 20041105
  Transmission Date: 20050727
  Serious: No
  Sender: FDA-Public Use
  Company Number: US-GLAXOSMITHKLINE-A0532853A

PATIENT
  Age: 79 Year
  Sex: Female

DRUGS (5)
  1. HYCAMTIN [Suspect]
     Route: 042
     Dates: start: 20041001
  2. GLYBURIDE [Concomitant]
  3. TOPROL-XL [Concomitant]
  4. GLUCOPHAGE [Concomitant]
  5. DARVOCET [Concomitant]

REACTIONS (4)
  - ASTHENIA [None]
  - DECREASED APPETITE [None]
  - DIARRHOEA [None]
  - NAUSEA [None]
